FAERS Safety Report 7522830-X (Version None)
Quarter: 2011Q2

REPORT INFORMATION
  Report Type: 
  Country: None (occurrence: None)
  Receive Date: 20110603
  Receipt Date: 20110524
  Transmission Date: 20111010
  Serious: Yes (Hospitalization)
  Sender: FDA-Public Use
  Company Number: PHHY2011TR44891

PATIENT
  Age: 47 Year
  Sex: Female

DRUGS (4)
  1. HYDROXYCHLOROQUINE SULFATE [Suspect]
     Indication: RHEUMATOID ARTHRITIS
     Dosage: 200 MG/DAY
  2. DEFLAZACORTE [Suspect]
     Indication: RHEUMATOID ARTHRITIS
     Dosage: 6 MG/DAY
  3. LEFLUNOMIDE [Suspect]
     Indication: RHEUMATOID ARTHRITIS
     Dosage: 20 MG/DAY
  4. METHOTREXATE [Suspect]
     Indication: RHEUMATOID ARTHRITIS
     Dosage: 15 MG, QW

REACTIONS (19)
  - ASCITES [None]
  - COMPLEMENT FACTOR DECREASED [None]
  - SYSTEMIC LUPUS ERYTHEMATOSUS [None]
  - PYREXIA [None]
  - DYSPNOEA [None]
  - GENERAL PHYSICAL HEALTH DETERIORATION [None]
  - ABDOMINAL DISCOMFORT [None]
  - CARBOHYDRATE ANTIGEN 125 INCREASED [None]
  - HYPOTENSION [None]
  - PALLOR [None]
  - PRIMARY PROGRESSIVE MULTIPLE SCLEROSIS [None]
  - MEIGS' SYNDROME [None]
  - PERICARDIAL EFFUSION [None]
  - DIARRHOEA [None]
  - HEART RATE INCREASED [None]
  - LEUKOPENIA [None]
  - PLEURAL EFFUSION [None]
  - ASTHENIA [None]
  - VOMITING [None]
